FAERS Safety Report 5310136-9 (Version None)
Quarter: 2007Q2

REPORT INFORMATION
  Report Type: 
  Country: None (occurrence: None)
  Receive Date: 20070427
  Receipt Date: 20070416
  Transmission Date: 20071010
  Serious: Yes (Death, Hospitalization)
  Sender: FDA-Public Use
  Company Number: IT-ROCHE-480002

PATIENT
  Age: 62 Year
  Sex: Male

DRUGS (11)
  1. PEG-INTERFERON A-2A (RO 25-8310) [Suspect]
     Route: 058
     Dates: start: 20060814, end: 20061203
  2. PEG-INTERFERON A-2A (RO 25-8310) [Suspect]
     Dosage: THE PATIENT RECEIVED THE LAST DOSE OF STUDY TREATMENT, PEG-INTERFERON ALFA 2A ON 19 DECEMBER 2006
     Route: 058
     Dates: start: 20061204, end: 20061219
  3. RIBAVIRIN [Suspect]
     Dosage: THE PATIENT RECEIVED THE LAST DOSE OF STUDY TREATMENT, RIBAVIRIN ON 23 DECEMBER 2006
     Route: 048
     Dates: start: 20060814, end: 20061224
  4. BLINDED THYMOSIN ALFA 1 [Suspect]
     Dosage: THE PATIENT RECEIVED THE LAST DOSE OF STUDY TREATMENT, BLINDED THYMOSIN ALPHA 1 ON 22 DECEMBER 2006
     Route: 058
     Dates: start: 20060814, end: 20061222
  5. PROPRANOLOL [Concomitant]
     Indication: PROPHYLAXIS
     Route: 048
     Dates: start: 20031122, end: 20070125
  6. PANTOPRAZOLE [Concomitant]
     Indication: GASTRITIS
     Route: 048
     Dates: start: 20061130, end: 20070120
  7. POTASSIUM CANRENOATE [Concomitant]
     Indication: PROPHYLAXIS
     Route: 048
     Dates: start: 20061114, end: 20070125
  8. FUROSEMIDE [Concomitant]
     Indication: PROPHYLAXIS
     Route: 048
     Dates: start: 20061130, end: 20070125
  9. LANSOPRAZOL [Concomitant]
     Route: 048
     Dates: start: 20070120, end: 20070123
  10. OMEPRAZOLE [Concomitant]
     Dates: start: 20070124, end: 20070125
  11. OXYGEN [Concomitant]
     Dosage: OXYGEN THERAPY

REACTIONS (30)
  - ALANINE AMINOTRANSFERASE INCREASED [None]
  - ANURIA [None]
  - ASCITES [None]
  - ASPARTATE AMINOTRANSFERASE INCREASED [None]
  - BLOOD ALBUMIN DECREASED [None]
  - BLOOD BILIRUBIN INCREASED [None]
  - BLOOD CREATINE PHOSPHOKINASE INCREASED [None]
  - BLOOD CREATININE INCREASED [None]
  - BLOOD GLUCOSE INCREASED [None]
  - BLOOD LACTATE DEHYDROGENASE INCREASED [None]
  - BLOOD PH INCREASED [None]
  - BLOOD SODIUM DECREASED [None]
  - BLOOD UREA INCREASED [None]
  - BRONCHIECTASIS [None]
  - CARDIOPULMONARY FAILURE [None]
  - COMA [None]
  - CYANOSIS [None]
  - HAEMATOCRIT INCREASED [None]
  - HAEMOGLOBIN INCREASED [None]
  - HYPOTENSION [None]
  - MEAN CELL VOLUME INCREASED [None]
  - PCO2 DECREASED [None]
  - PLATELET COUNT DECREASED [None]
  - PO2 DECREASED [None]
  - PROTEIN TOTAL DECREASED [None]
  - PULMONARY EMBOLISM [None]
  - PULMONARY FIBROSIS [None]
  - RESPIRATORY DISORDER [None]
  - SINUS TACHYCARDIA [None]
  - WHITE BLOOD CELL COUNT DECREASED [None]
